FAERS Safety Report 11562970 (Version 1)
Quarter: 2015Q3

REPORT INFORMATION
  Report Type: Report from Study
  Country: DE (occurrence: DE)
  Receive Date: 20150928
  Receipt Date: 20150928
  Transmission Date: 20151125
  Serious: Yes (Hospitalization, Disabling, Other)
  Sender: FDA-Public Use
  Company Number: DE-REGENERON PHARMACEUTICALS, INC.-2014-20440

PATIENT

DRUGS (6)
  1. EYLEA [Suspect]
     Active Substance: AFLIBERCEPT
     Indication: NEOVASCULAR AGE-RELATED MACULAR DEGENERATION
     Dosage: 50 (OD) ONE OF THE FIRST 3 INJECTIONS
     Dates: start: 20140402, end: 20140402
  2. EYLEA [Suspect]
     Active Substance: AFLIBERCEPT
     Dosage: 0.05 ML, FREQUENCY NOT REPORTED
  3. EYLEA [Suspect]
     Active Substance: AFLIBERCEPT
     Dosage: 50 ONE OF THE FIRST 3 INJECTIONS
     Dates: start: 20140603, end: 20140603
  4. EYLEA [Concomitant]
     Active Substance: AFLIBERCEPT
     Indication: NEOVASCULAR AGE-RELATED MACULAR DEGENERATION
     Dosage: .05 ML MILLILITRE(S), LEFT EYE
     Dates: start: 20140930
  5. EYLEA [Suspect]
     Active Substance: AFLIBERCEPT
     Dosage: 50 ONE OF  THE FIRST 3 INJECTIONS
     Dates: start: 20140505, end: 20140505
  6. EYLEA [Suspect]
     Active Substance: AFLIBERCEPT
     Dosage: 50 - LAST EYLEA INJECTION
     Dates: start: 20140718, end: 20140718

REACTIONS (5)
  - Retinal haemorrhage [Not Recovered/Not Resolved]
  - Neovascular age-related macular degeneration [Not Recovered/Not Resolved]
  - Macular oedema [Not Recovered/Not Resolved]
  - Retinal pigment epithelial tear [Not Recovered/Not Resolved]
  - Vitreous haemorrhage [Not Recovered/Not Resolved]

NARRATIVE: CASE EVENT DATE: 20140902
